FAERS Safety Report 13818275 (Version 1)
Quarter: 2017Q3

REPORT INFORMATION
  Report Type: Spontaneous
  Country: US (occurrence: US)
  Receive Date: 20170731
  Receipt Date: 20170731
  Transmission Date: 20171127
  Serious: No
  Sender: FDA-Public Use
  Company Number: US-ROCHE-631869

PATIENT
  Age: 62 Year
  Sex: Female

DRUGS (1)
  1. BONIVA [Suspect]
     Active Substance: IBANDRONATE SODIUM
     Indication: OSTEOPOROSIS
     Dosage: OTHER INDICATION: OSTEOPENIA
     Route: 042

REACTIONS (7)
  - Influenza like illness [Unknown]
  - Pain [Not Recovered/Not Resolved]
  - Burning sensation [Recovered/Resolved]
  - Nausea [Unknown]
  - Paraesthesia [Not Recovered/Not Resolved]
  - Sinusitis [Unknown]
  - Vomiting [Unknown]

NARRATIVE: CASE EVENT DATE: 20090402
